FAERS Safety Report 15784169 (Version 1)
Quarter: 2019Q1

REPORT INFORMATION
  Report Type: Report from Study
  Country: None (occurrence: CA)
  Receive Date: 20190103
  Receipt Date: 20190103
  Transmission Date: 20190417
  Serious: Yes (Other)
  Sender: FDA-Public Use
  Company Number: CA-ABBVIE-19K-028-2609330-00

PATIENT
  Age: 54 Year
  Sex: Female

DRUGS (1)
  1. HUMIRA [Suspect]
     Active Substance: ADALIMUMAB
     Indication: RHEUMATOID ARTHRITIS
     Route: 058
     Dates: start: 20151115

REACTIONS (13)
  - Aphasia [Recovered/Resolved]
  - Bone contusion [Unknown]
  - Skin discolouration [Unknown]
  - Skin discolouration [Recovered/Resolved]
  - Loss of consciousness [Unknown]
  - Dizziness [Recovering/Resolving]
  - Hypophagia [Unknown]
  - Fall [Recovered/Resolved]
  - Vision blurred [Recovered/Resolved]
  - Syncope [Recovered/Resolved]
  - Nausea [Recovering/Resolving]
  - Loss of consciousness [Recovered/Resolved]
  - Tinnitus [Recovering/Resolving]

NARRATIVE: CASE EVENT DATE: 2018
